FAERS Safety Report 6899475-8 (Version None)
Quarter: 2010Q3

REPORT INFORMATION
  Report Type: 
  Country: None (occurrence: None)
  Receive Date: 20100803
  Receipt Date: 20100722
  Transmission Date: 20110219
  Serious: Yes (Hospitalization)
  Sender: FDA-Public Use
  Company Number: DE-BIOGENIDEC-2010BI025281

PATIENT
  Age: 59 Year
  Sex: Female

DRUGS (3)
  1. TYSABRI [Suspect]
     Indication: MULTIPLE SCLEROSIS
     Route: 042
     Dates: start: 20081124, end: 20100224
  2. NALOXONE HYDROCHLORIDE (COMPONENT OF TARGIN) [Concomitant]
     Indication: BACK PAIN
     Route: 048
  3. OXYCODONE HYDROCHLORIDE (COMPONENT OF TARGIN) [Concomitant]
     Indication: BACK PAIN
     Route: 048

REACTIONS (1)
  - INTERVERTEBRAL DISC PROTRUSION [None]
